FAERS Safety Report 8147126-7 (Version None)
Quarter: 2012Q1

REPORT INFORMATION
  Report Type: 
  Country: None (occurrence: None)
  Receive Date: 20120218
  Receipt Date: 20110112
  Transmission Date: 20120608
  Serious: No
  Sender: FDA-Public Use
  Company Number: US-ALLERGAN-1100430US

PATIENT
  Age: 57 Year
  Sex: Female
  Weight: 118 kg

DRUGS (1)
  1. BOTOX COSMETIC [Suspect]
     Indication: SKIN WRINKLING
     Dosage: UNK UNITS
     Dates: start: 20101006, end: 20101006

REACTIONS (2)
  - DRUG INEFFECTIVE [None]
  - INJECTION SITE PAIN [None]
